FAERS Safety Report 6026358-8 (Version None)
Quarter: 2009Q1

REPORT INFORMATION
  Report Type: 
  Country: None (occurrence: None)
  Receive Date: 20090102
  Receipt Date: 20081222
  Transmission Date: 20090719
  Serious: Yes (Other)
  Sender: FDA-Public Use
  Company Number: PHHY2008GB30579

PATIENT
  Sex: Male

DRUGS (4)
  1. CLOZARIL [Suspect]
     Indication: SCHIZOPHRENIA
     Dosage: UNK
     Dates: start: 19921110
  2. LACTULOSE [Concomitant]
     Dosage: 20 ML
     Route: 048
  3. CLORAL POETAINE [Concomitant]
     Route: 048
  4. VITAMINS [Concomitant]
     Route: 048

REACTIONS (5)
  - DIFFERENTIAL WHITE BLOOD CELL COUNT ABNORMAL [None]
  - MUSCULOSKELETAL CHEST PAIN [None]
  - NEUTROPHIL COUNT INCREASED [None]
  - PLATELET COUNT INCREASED [None]
  - WHITE BLOOD CELL COUNT INCREASED [None]
